FAERS Safety Report 8267359-9 (Version None)
Quarter: 2012Q2

REPORT INFORMATION
  Report Type: 
  Country: None (occurrence: None)
  Receive Date: 20120409
  Receipt Date: 20120329
  Transmission Date: 20120825
  Serious: Yes (Hospitalization, Other)
  Sender: FDA-Public Use
  Company Number: PHEH2012US003504

PATIENT
  Sex: Male
  Weight: 29.5 kg

DRUGS (2)
  1. EXJADE [Suspect]
     Dosage: 1000 MG, DAILY
     Route: 048
     Dates: start: 20120130, end: 20120224
  2. EXJADE [Suspect]
     Indication: IRON OVERLOAD
     Dosage: 750 MG, DAILY
     Route: 048
     Dates: start: 20060601, end: 20120106

REACTIONS (6)
  - ULCER [None]
  - ABDOMINAL PAIN [None]
  - GASTROINTESTINAL PERFORATION [None]
  - PNEUMOPERITONEUM [None]
  - HELICOBACTER INFECTION [None]
  - SERUM FERRITIN INCREASED [None]
